FAERS Safety Report 7323239-4 (Version None)
Quarter: 2011Q1

REPORT INFORMATION
  Report Type: 
  Country: None (occurrence: None)
  Receive Date: 20110217
  Receipt Date: 20110208
  Transmission Date: 20110831
  Serious: Yes (Death, Hospitalization, Other)
  Sender: FDA-Public Use
  Company Number: 024569

PATIENT
  Sex: Female
  Weight: 67 kg

DRUGS (11)
  1. SIMVASTATIN [Concomitant]
  2. CERTOLIZUMAB PEGOL (CERTOLIZUMAB PEGOL) [Suspect]
     Indication: RHEUMATOID ARTHRITIS
     Dosage: 200 MG 1X.2 WEEKS, SUBCUTANEOUS
     Route: 058
     Dates: start: 20100920, end: 20101213
  3. ALENDRONIC ACID [Concomitant]
  4. ASPIRIN [Concomitant]
  5. PREDNISOLONE [Concomitant]
  6. CALCIUM W/COLECALCIFEROL [Concomitant]
  7. AMLODIPINE [Concomitant]
  8. ARAVA [Concomitant]
  9. MICARDIS [Concomitant]
  10. OMEPRAZOLE [Concomitant]
  11. ARCOXIA [Concomitant]

REACTIONS (21)
  - DEHYDRATION [None]
  - BUNDLE BRANCH BLOCK LEFT [None]
  - CARDIAC FAILURE [None]
  - ANAEMIA [None]
  - INTERSTITIAL LUNG DISEASE [None]
  - HYPOKALAEMIA [None]
  - PULMONARY CONGESTION [None]
  - AORTIC ARTERIOSCLEROSIS [None]
  - SEPTIC SHOCK [None]
  - DERMATITIS PSORIASIFORM [None]
  - WEIGHT DECREASED [None]
  - MITRAL VALVE INCOMPETENCE [None]
  - AORTIC CALCIFICATION [None]
  - MUSCULAR WEAKNESS [None]
  - PNEUMONIA [None]
  - MITRAL VALVE CALCIFICATION [None]
  - GASTROINTESTINAL VIRAL INFECTION [None]
  - RESPIRATORY FAILURE [None]
  - VENTRICULAR FIBRILLATION [None]
  - HYPOALBUMINAEMIA [None]
  - RENAL FAILURE CHRONIC [None]
